FAERS Safety Report 5717273-5 (Version None)
Quarter: 2008Q2

REPORT INFORMATION
  Report Type: 
  Country: None (occurrence: None)
  Receive Date: 20080424
  Receipt Date: 20080416
  Transmission Date: 20081010
  Serious: Yes (Hospitalization)
  Sender: FDA-Public Use
  Company Number: PHHO2007US13455

PATIENT
  Age: 81 Year
  Sex: Female
  Weight: 41.8 kg

DRUGS (4)
  1. ALISKIREN VS RAMIPRIL [Suspect]
     Indication: ESSENTIAL HYPERTENSION
     Dosage: CODE NOT BROKEN
     Route: 048
     Dates: start: 20070125
  2. ZOLOFT [Concomitant]
  3. MACRODANTIN [Concomitant]
  4. HYDROCHLOROTHIAZIDE [Suspect]
     Indication: ESSENTIAL HYPERTENSION

REACTIONS (3)
  - ATRIAL FIBRILLATION [None]
  - DEHYDRATION [None]
  - SYNCOPE [None]
